FAERS Safety Report 24704854 (Version 2)
Quarter: 2025Q1

REPORT INFORMATION
  Report Type: Spontaneous
  Country: JP (occurrence: JP)
  Receive Date: 20241206
  Receipt Date: 20250214
  Transmission Date: 20250409
  Serious: No
  Sender: RECORDATI
  Company Number: JP-RECORDATI RARE DISEASE INC.-2024009506

PATIENT
  Age: 67 Year
  Sex: Female

DRUGS (2)
  1. ISTURISA [Suspect]
     Active Substance: OSILODROSTAT PHOSPHATE
     Indication: Ectopic ACTH syndrome
     Route: 065
  2. HYDROCORTISONE [Concomitant]
     Active Substance: HYDROCORTISONE
     Indication: Ectopic ACTH syndrome

REACTIONS (1)
  - Off label use [Recovered/Resolved]
